FAERS Safety Report 7501768-8 (Version None)
Quarter: 2011Q2

REPORT INFORMATION
  Report Type: 
  Country: None (occurrence: None)
  Receive Date: 20110523
  Receipt Date: 20110523
  Transmission Date: 20111010
  Serious: Yes (Hospitalization)
  Sender: FDA-Public Use
  Company Number: None

PATIENT
  Age: 80 Year
  Sex: Female
  Weight: 82.8 kg

DRUGS (6)
  1. QUINIDINE HCL [Suspect]
     Indication: ARRHYTHMIA SUPRAVENTRICULAR
     Dosage: 324MG TID PO RECENT X 2WKS
     Route: 048
  2. METIPROPANOLOL [Concomitant]
  3. COUMADIN [Concomitant]
  4. DIOVAN [Concomitant]
  5. FOSAMAX [Concomitant]
  6. LESCOL [Concomitant]

REACTIONS (3)
  - HAEMOLYTIC ANAEMIA [None]
  - MUSCLE HAEMORRHAGE [None]
  - AUTOIMMUNE THROMBOCYTOPENIA [None]
